FAERS Safety Report 6059081-4 (Version None)
Quarter: 2009Q1

REPORT INFORMATION
  Report Type: 
  Country: None (occurrence: None)
  Receive Date: 20090130
  Receipt Date: 20090122
  Transmission Date: 20090719
  Serious: Yes (Hospitalization)
  Sender: FDA-Public Use
  Company Number: B0556608A

PATIENT
  Age: 2 Year
  Sex: Male

DRUGS (1)
  1. VENTOLIN [Suspect]
     Indication: DRUG USE FOR UNKNOWN INDICATION
     Route: 048

REACTIONS (5)
  - ACCIDENTAL OVERDOSE [None]
  - DRUG ADMINISTRATION ERROR [None]
  - INCORRECT ROUTE OF DRUG ADMINISTRATION [None]
  - PALPITATIONS [None]
  - PRODUCT QUALITY ISSUE [None]
